FAERS Safety Report 19524434 (Version 9)
Quarter: 2022Q2

REPORT INFORMATION
  Report Type: Spontaneous
  Country: CA (occurrence: CA)
  Receive Date: 20210713
  Receipt Date: 20220624
  Transmission Date: 20220721
  Serious: Yes (Other)
  Sender: FDA-Public Use
  Company Number: CA-CELLTRION INC.-2021CA003871

PATIENT

DRUGS (8)
  1. INFLECTRA [Suspect]
     Active Substance: INFLIXIMAB-DYYB
     Indication: Crohn^s disease
     Dosage: 600 MG, INDUCTION AT EVERY 0 , 2, 6 WEEK
     Route: 042
     Dates: start: 20201127
  2. INFLECTRA [Suspect]
     Active Substance: INFLIXIMAB-DYYB
     Indication: Ankylosing spondylitis
     Dosage: 600 MG, INDUCTION AT EVERY 0 , 2, 6 WEEK
     Route: 042
     Dates: start: 20210108
  3. INFLECTRA [Suspect]
     Active Substance: INFLIXIMAB-DYYB
     Dosage: 600 MG, INDUCTION AT EVERY 0 , 2, 6 WEEK
     Route: 042
     Dates: start: 20210503
  4. INFLECTRA [Suspect]
     Active Substance: INFLIXIMAB-DYYB
     Dosage: 600 MG, INDUCTION AT EVERY 0 , 2, 6 WEEK
     Route: 042
     Dates: start: 20210628
  5. INFLECTRA [Suspect]
     Active Substance: INFLIXIMAB-DYYB
     Dosage: 600 MG EVERY 7 WEEK
     Route: 042
     Dates: start: 20210816
  6. INFLECTRA [Suspect]
     Active Substance: INFLIXIMAB-DYYB
     Dosage: 600 MG, INDUCTION AT EVERY 0 , 2, 6 WEEK
     Route: 042
     Dates: start: 20211122
  7. INFLECTRA [Suspect]
     Active Substance: INFLIXIMAB-DYYB
     Dosage: 600 MG EVERY 7 WEEK
     Route: 042
     Dates: start: 20220418
  8. INFLECTRA [Suspect]
     Active Substance: INFLIXIMAB-DYYB
     Dosage: 600 MG EVERY 7 WEEK
     Route: 042
     Dates: start: 20220613

REACTIONS (24)
  - Foot fracture [Unknown]
  - Fall [Unknown]
  - Cervical spinal stenosis [Unknown]
  - Off label use [Unknown]
  - Arthritis [Unknown]
  - Peripheral swelling [Unknown]
  - Skin indentation [Unknown]
  - Erythema [Unknown]
  - Psoriasis [Unknown]
  - Pain in extremity [Unknown]
  - Osteoma [Unknown]
  - Dry eye [Unknown]
  - Ocular discomfort [Unknown]
  - Eye discharge [Unknown]
  - Ocular hyperaemia [Unknown]
  - Eye swelling [Unknown]
  - Impaired quality of life [Not Recovered/Not Resolved]
  - Illness [Not Recovered/Not Resolved]
  - Tooth extraction [Unknown]
  - Tendon rupture [Unknown]
  - Back pain [Not Recovered/Not Resolved]
  - Gait disturbance [Unknown]
  - Rash [Not Recovered/Not Resolved]
  - COVID-19 [Recovered/Resolved]

NARRATIVE: CASE EVENT DATE: 20210101
